FAERS Safety Report 4506598-7 (Version None)
Quarter: 2004Q4

REPORT INFORMATION
  Report Type: 
  Country: None (occurrence: None)
  Receive Date: 20041117
  Receipt Date: 20041109
  Transmission Date: 20050328
  Serious: Yes (Hospitalization, Other)
  Sender: FDA-Public Use
  Company Number: 2004-10-0824

PATIENT
  Age: 50 Year
  Sex: Male
  Weight: 93.441 kg

DRUGS (5)
  1. PEG-INTRON [Suspect]
     Indication: HEPATITIS C
     Dosage: 150 MCG QW SUBCUTANEOUS
     Route: 058
     Dates: start: 20040312, end: 20040812
  2. REBETOL [Suspect]
     Indication: HEPATITIS C
     Dosage: 1200 MG QD ORAL
     Route: 048
     Dates: start: 20040301
  3. PROZAC [Concomitant]
  4. WELLBUTRIN [Concomitant]
  5. TRAZODONE HCL [Concomitant]

REACTIONS (13)
  - ANIMAL BITE [None]
  - BLOOD CALCIUM DECREASED [None]
  - CANDIDIASIS [None]
  - GINGIVAL BLEEDING [None]
  - IMMUNOSUPPRESSION [None]
  - LUNG INFILTRATION [None]
  - OEDEMA PERIPHERAL [None]
  - PAIN IN EXTREMITY [None]
  - PANCYTOPENIA [None]
  - PNEUMONIA ASPIRATION [None]
  - PYREXIA [None]
  - SPUTUM CULTURE POSITIVE [None]
  - VOMITING [None]
